FAERS Safety Report 9594659 (Version 2)
Quarter: 2013Q4

REPORT INFORMATION
  Report Type: Spontaneous
  Country: JP (occurrence: JP)
  Receive Date: 20131004
  Receipt Date: 20131226
  Transmission Date: 20140711
  Serious: Yes (Disabling)
  Sender: FDA-Public Use
  Company Number: JP-ELI_LILLY_AND_COMPANY-JP201309010039

PATIENT
  Age: 79 Year
  Sex: Male

DRUGS (3)
  1. GEMZAR [Suspect]
     Indication: TRANSITIONAL CELL CARCINOMA
     Dosage: UNK, GEM+CDDP
     Route: 042
     Dates: start: 20130918
  2. GEMZAR [Suspect]
     Dosage: GEM ONLY
     Route: 042
  3. CISPLATIN [Concomitant]
     Indication: TRANSITIONAL CELL CARCINOMA
     Dosage: UNK
     Route: 042

REACTIONS (2)
  - Cerebral infarction [Recovered/Resolved with Sequelae]
  - Fall [Unknown]
